FAERS Safety Report 7686473-X (Version None)
Quarter: 2011Q3

REPORT INFORMATION
  Report Type: 
  Country: None (occurrence: None)
  Receive Date: 20110816
  Receipt Date: 20110811
  Transmission Date: 20111222
  Serious: Yes (Hospitalization)
  Sender: FDA-Public Use
  Company Number: US-SHIRE-ALL1-2011-02690

PATIENT
  Sex: Female
  Weight: 63.492 kg

DRUGS (3)
  1. LIALDA [Suspect]
     Indication: COLITIS ULCERATIVE
     Dosage: 4.8 G (4- 1.2G TABLETS DAILY), 1X/DAY:QD
     Route: 048
     Dates: start: 20100101, end: 20110721
  2. CALCIUM CARBONATE [Concomitant]
     Indication: SUPPLEMENTATION THERAPY
     Dosage: UNK, 1X/DAY:QD
  3. FERROUS SULFATE TAB [Concomitant]
     Indication: SUPPLEMENTATION THERAPY
     Dosage: UNK, 1X/DAY:QD
     Route: 048

REACTIONS (3)
  - ABDOMINAL PAIN UPPER [None]
  - ALOPECIA [None]
  - DEHYDRATION [None]
